FAERS Safety Report 12077496 (Version 4)
Quarter: 2016Q4

REPORT INFORMATION
  Report Type: Spontaneous
  Country: TR (occurrence: TR)
  Receive Date: 20160215
  Receipt Date: 20161209
  Transmission Date: 20170206
  Serious: Yes (Other)
  Sender: FDA-Public Use
  Company Number: TR-BAYER-2016-023490

PATIENT
  Age: 67 Year
  Sex: Male

DRUGS (4)
  1. ASPIRIN PLUS C [Suspect]
     Active Substance: ASCORBIC ACID\ASPIRIN
     Dosage: UNK
     Route: 048
     Dates: start: 1985
  2. SILODOSIN [Suspect]
     Active Substance: SILODOSIN
     Dosage: UNK
  3. DELIX PLUS [Concomitant]
     Active Substance: HYDROCHLOROTHIAZIDE\RAMIPRIL
     Dosage: UNK
  4. ASPIRIN. [Suspect]
     Active Substance: ASPIRIN
     Indication: POOR QUALITY SLEEP

REACTIONS (11)
  - Unevaluable event [None]
  - Diabetes mellitus [None]
  - Prostatic disorder [None]
  - Skin discolouration [Not Recovered/Not Resolved]
  - Visual impairment [None]
  - Epistaxis [None]
  - Product use issue [Not Recovered/Not Resolved]
  - Intentional product misuse [Not Recovered/Not Resolved]
  - Gait disturbance [Not Recovered/Not Resolved]
  - Hypertension [None]
  - Headache [Not Recovered/Not Resolved]

NARRATIVE: CASE EVENT DATE: 201601
